FAERS Safety Report 6890821-8 (Version None)
Quarter: 2010Q3

REPORT INFORMATION
  Report Type: 
  Country: None (occurrence: None)
  Receive Date: 20100731
  Receipt Date: 20090327
  Transmission Date: 20110219
  Serious: No
  Sender: FDA-Public Use
  Company Number: US-PFIZER INC-2009184796

PATIENT
  Age: 86 Year
  Sex: Female

DRUGS (2)
  1. LIPITOR [Suspect]
     Dosage: UNK
     Dates: start: 20081001
  2. PLAVIX [Suspect]
     Indication: CARDIAC DISORDER
     Dosage: UNK
     Route: 048
     Dates: start: 20081001

REACTIONS (1)
  - ABDOMINAL DISCOMFORT [None]
